FAERS Safety Report 26066728 (Version 2)
Quarter: 2025Q4

REPORT INFORMATION
  Report Type: Spontaneous
  Country: CN (occurrence: CN)
  Receive Date: 20251119
  Receipt Date: 20251202
  Transmission Date: 20260117
  Serious: Yes (Hospitalization)
  Sender: NOVO NORDISK
  Company Number: None

PATIENT
  Age: 44 Year
  Sex: Male
  Weight: 76.5 kg

DRUGS (35)
  1. OZEMPIC [Suspect]
     Active Substance: SEMAGLUTIDE
     Dosage: 0.5 MG, QW
     Route: 058
     Dates: start: 20250903, end: 20250903
  2. OZEMPIC [Suspect]
     Active Substance: SEMAGLUTIDE
     Dosage: 1 MG, QW
     Route: 058
     Dates: start: 20251021, end: 20251021
  3. OZEMPIC [Suspect]
     Active Substance: SEMAGLUTIDE
     Dosage: 1 MG, QW
     Route: 058
     Dates: start: 20251015, end: 20251015
  4. OZEMPIC [Suspect]
     Active Substance: SEMAGLUTIDE
     Indication: Type 2 diabetes mellitus
     Dosage: 0.25 MG, QW
     Route: 058
     Dates: start: 20250730, end: 20250730
  5. OZEMPIC [Suspect]
     Active Substance: SEMAGLUTIDE
     Dosage: 0.25 MG, QW
     Route: 058
     Dates: start: 20250806, end: 20250806
  6. OZEMPIC [Suspect]
     Active Substance: SEMAGLUTIDE
     Dosage: 0.25 MG, QW
     Route: 058
     Dates: start: 20250814, end: 20250814
  7. OZEMPIC [Suspect]
     Active Substance: SEMAGLUTIDE
     Dosage: 0.25 MG, QW
     Route: 058
     Dates: start: 20250820, end: 20250820
  8. OZEMPIC [Suspect]
     Active Substance: SEMAGLUTIDE
     Dosage: 0.5 MG, QW
     Route: 058
     Dates: start: 20250827, end: 20250827
  9. OZEMPIC [Suspect]
     Active Substance: SEMAGLUTIDE
     Dosage: 0.5 MG, QW
     Route: 058
     Dates: start: 20250910, end: 20250910
  10. OZEMPIC [Suspect]
     Active Substance: SEMAGLUTIDE
     Dosage: 0.5 MG, QW
     Route: 058
     Dates: start: 20250917, end: 20250917
  11. OZEMPIC [Suspect]
     Active Substance: SEMAGLUTIDE
     Dosage: 1 MG, QW
     Route: 058
     Dates: start: 20250923, end: 20250923
  12. OZEMPIC [Suspect]
     Active Substance: SEMAGLUTIDE
     Dosage: 1 MG, QW
     Route: 058
     Dates: start: 20251001, end: 20251001
  13. OZEMPIC [Suspect]
     Active Substance: SEMAGLUTIDE
     Dosage: 1 MG, QW
     Route: 058
     Dates: start: 20251008, end: 20251008
  14. POTASSIUM CHLORIDE [Concomitant]
     Active Substance: POTASSIUM CHLORIDE
     Indication: Electrolyte imbalance
     Dosage: 10MG, 5 TIMES
     Route: 042
     Dates: start: 20251022, end: 20251022
  15. POTASSIUM CHLORIDE [Concomitant]
     Active Substance: POTASSIUM CHLORIDE
     Dosage: 10 MG, BID
     Route: 042
     Dates: start: 20251025, end: 20251025
  16. POTASSIUM CHLORIDE [Concomitant]
     Active Substance: POTASSIUM CHLORIDE
     Dosage: 10 MG, QID
     Route: 042
     Dates: start: 20251024, end: 20251024
  17. INSULIN ASPART [Concomitant]
     Active Substance: INSULIN ASPART
     Dosage: 29.6 IU, QD
     Route: 030
     Dates: start: 20251024, end: 20251030
  18. INSULIN ASPART [Concomitant]
     Active Substance: INSULIN ASPART
     Dosage: 12 IU, QD
     Route: 030
     Dates: start: 20251031, end: 20251031
  19. INSULIN ASPART [Concomitant]
     Active Substance: INSULIN ASPART
     Indication: Diabetic ketoacidosis
     Dosage: 25 IU, QD
     Route: 030
     Dates: start: 20251022, end: 20251023
  20. INSULIN ASPART [Concomitant]
     Active Substance: INSULIN ASPART
     Dosage: 29.6 IU, QD
     Route: 030
     Dates: start: 20251024, end: 20251030
  21. HYALURONIDASE [Concomitant]
     Active Substance: HYALURONIDASE
     Indication: Diabetic ketoacidosis
     Dosage: 40 IU, QD
     Route: 030
     Dates: start: 20251022, end: 20251025
  22. PAPAVERINE [Concomitant]
     Active Substance: PAPAVERINE
     Indication: Diabetic ketoacidosis
     Dosage: 30 MG, QD
     Route: 042
     Dates: start: 20251022, end: 20251025
  23. METOCLOPRAMIDE HYDROCHLORIDE [Concomitant]
     Active Substance: METOCLOPRAMIDE HYDROCHLORIDE
     Indication: Diabetic ketoacidosis
     Dosage: 10 MG, TID
     Route: 030
     Dates: start: 20251022
  24. ESOMEPRAZOLE SODIUM [Concomitant]
     Active Substance: ESOMEPRAZOLE SODIUM
     Indication: Diabetic ketoacidosis
     Dosage: 40 MG, QD
     Route: 042
     Dates: start: 20251022
  25. ESOMEPRAZOLE SODIUM [Concomitant]
     Active Substance: ESOMEPRAZOLE SODIUM
     Dosage: 40 MG, BID
     Route: 042
     Dates: start: 20251024, end: 20251027
  26. VITAMIN D2 [Concomitant]
     Active Substance: ERGOCALCIFEROL
     Indication: Vitamin D deficiency
     Dosage: 0.125 MG, QD
     Route: 048
     Dates: start: 20251023
  27. VITAMIN D2 [Concomitant]
     Active Substance: ERGOCALCIFEROL
     Dosage: 15 MG, QD
     Route: 048
     Dates: start: 20251023, end: 20251023
  28. DAPAGLIFLOZIN PROPANEDIOL\METFORMIN HYDROCHLORIDE [Concomitant]
     Active Substance: DAPAGLIFLOZIN PROPANEDIOL\METFORMIN HYDROCHLORIDE
     Dosage: UNK10MG/1000MG, 1 TABLET, QD
     Route: 048
     Dates: start: 20240417, end: 20251022
  29. METOPROLOL SUCCINATE [Concomitant]
     Active Substance: METOPROLOL SUCCINATE
     Indication: Sinus tachycardia
     Dosage: 23.75 MG, QD
     Route: 048
     Dates: start: 20250920, end: 20251023
  30. METOPROLOL SUCCINATE [Concomitant]
     Active Substance: METOPROLOL SUCCINATE
     Dosage: 23.75 MG, BID
     Route: 048
     Dates: start: 20251027, end: 20251027
  31. INSULIN HUMAN [Concomitant]
     Active Substance: INSULIN HUMAN
     Indication: Diabetic ketoacidosis
     Dosage: 8 IU, TID
     Route: 042
     Dates: start: 20251024, end: 20251024
  32. DOXAZOSIN [Concomitant]
     Active Substance: DOXAZOSIN MESYLATE
     Dosage: 2MG, AT NOON
     Route: 048
     Dates: start: 20251025, end: 20251025
  33. PHENOXYBENZAMINE [Concomitant]
     Active Substance: PHENOXYBENZAMINE
     Dosage: 1 TABLET, BID
     Route: 048
     Dates: start: 20251025, end: 20251026
  34. SACUBITRIL\VALSARTAN [Concomitant]
     Active Substance: SACUBITRIL\VALSARTAN
     Dosage: 200 MG, QD
     Route: 048
     Dates: start: 20251027, end: 20251027
  35. METFORMIN HYDROCHLORIDE\PIOGLITAZONE HYDROCHLORIDE [Concomitant]
     Active Substance: METFORMIN HYDROCHLORIDE\PIOGLITAZONE HYDROCHLORIDE
     Dosage: 1 TABLET, BID
     Route: 048
     Dates: start: 20251030

REACTIONS (3)
  - Hypertension [Recovering/Resolving]
  - Vomiting [Recovered/Resolved]
  - Nausea [Recovered/Resolved]

NARRATIVE: CASE EVENT DATE: 20250925
